FAERS Safety Report 5645923-0 (Version None)
Quarter: 2008Q1

REPORT INFORMATION
  Report Type: 
  Country: None (occurrence: None)
  Receive Date: 20080131
  Receipt Date: 20071213
  Transmission Date: 20080703
  Serious: No
  Sender: FDA-Public Use
  Company Number: 163-21880-07120917

PATIENT
  Age: 75 Year
  Sex: Female

DRUGS (3)
  1. REVLIMID [Suspect]
     Indication: MULTIPLE MYELOMA
     Dosage: 15 MG, AS DIRECTED, ORAL
     Route: 048
     Dates: start: 20070613
  2. FENTANYL [Concomitant]
  3. BP PILL (ANTIHYPERTENSIVES) [Concomitant]

REACTIONS (3)
  - PLATELET COUNT DECREASED [None]
  - PRURITUS [None]
  - RED BLOOD CELL COUNT DECREASED [None]
